FAERS Safety Report 7445178-0 (Version None)
Quarter: 2011Q2

REPORT INFORMATION
  Report Type: 
  Country: None (occurrence: None)
  Receive Date: 20110427
  Receipt Date: 20110427
  Transmission Date: 20111010
  Serious: No
  Sender: FDA-Public Use
  Company Number: None

PATIENT
  Age: 81 Year
  Sex: Male

DRUGS (1)
  1. ERBITUX [Suspect]
     Indication: SQUAMOUS CELL CARCINOMA
     Dosage: 650 MG ONCE IV
     Route: 042
     Dates: start: 20110407, end: 20110407

REACTIONS (3)
  - FLUSHING [None]
  - OXYGEN SATURATION DECREASED [None]
  - DYSPNOEA [None]
